FAERS Safety Report 4526742-5 (Version None)
Quarter: 2004Q4

REPORT INFORMATION
  Report Type: 
  Country: None (occurrence: None)
  Receive Date: 20041213
  Receipt Date: 20041129
  Transmission Date: 20050328
  Serious: Yes (Hospitalization)
  Sender: FDA-Public Use
  Company Number: 2004BI000558

PATIENT
  Age: 44 Year
  Sex: Female
  Weight: 75.2971 kg

DRUGS (9)
  1. AVONEX [Suspect]
     Indication: MULTIPLE SCLEROSIS
     Dosage: 30 UG, QW, IM
     Route: 030
     Dates: start: 20020101, end: 20040101
  2. AVONEX [Suspect]
     Indication: MULTIPLE SCLEROSIS
     Dosage: 30 UG; QW; IM
     Route: 030
     Dates: start: 20040101
  3. DIOVAN [Concomitant]
  4. MOTRIN [Concomitant]
  5. PREVACID [Concomitant]
  6. PROVIGIL [Concomitant]
  7. ALLEGRA [Concomitant]
  8. QUININE [Concomitant]
  9. DITROPAN [Concomitant]

REACTIONS (1)
  - INFLUENZA LIKE ILLNESS [None]
